FAERS Safety Report 24942339 (Version 1)
Quarter: 2025Q1

REPORT INFORMATION
  Report Type: Spontaneous
  Country: DE (occurrence: DE)
  Receive Date: 20250207
  Receipt Date: 20250207
  Transmission Date: 20250409
  Serious: Yes (Hospitalization, Other)
  Sender: TEVA
  Company Number: DE-TEVA-VS-3293588

PATIENT
  Age: 2 Year
  Sex: Female

DRUGS (1)
  1. PROPAFENONE [Suspect]
     Active Substance: PROPAFENONE
     Indication: Wolff-Parkinson-White syndrome
     Route: 048

REACTIONS (6)
  - Tachycardia [Recovering/Resolving]
  - Infection [Unknown]
  - Condition aggravated [Unknown]
  - Pyrexia [Unknown]
  - Product preparation error [Unknown]
  - Incorrect dose administered [Unknown]

NARRATIVE: CASE EVENT DATE: 20250101
